FAERS Safety Report 16724889 (Version 5)
Quarter: 2019Q4

REPORT INFORMATION
  Report Type: Spontaneous
  Country: US (occurrence: US)
  Receive Date: 20190821
  Receipt Date: 20191101
  Transmission Date: 20200122
  Serious: No
  Sender: FDA-Public Use
  Company Number: US-PFIZER INC-2019339117

PATIENT
  Age: 75 Year
  Sex: Female

DRUGS (3)
  1. IBRANCE [Suspect]
     Active Substance: PALBOCICLIB
     Indication: BREAST CANCER METASTATIC
     Dosage: 75 MG, CYCLIC (21 DAYS ON, 7 DAYS OFF)
     Route: 048
     Dates: start: 201904, end: 2019
  2. IBRANCE [Suspect]
     Active Substance: PALBOCICLIB
     Dosage: 75 MG, CYCLIC (21 DAYS ON, 7 DAYS)
     Route: 048
     Dates: start: 20191019
  3. IBRANCE [Suspect]
     Active Substance: PALBOCICLIB
     Dosage: 100 MG, CYCLIC (FOR 21 DAYS)
     Dates: start: 201906, end: 2019

REACTIONS (7)
  - Cough [Unknown]
  - Blood count abnormal [Unknown]
  - Diarrhoea [Unknown]
  - Coordination abnormal [Unknown]
  - Dysphagia [Unknown]
  - Constipation [Unknown]
  - Arthralgia [Unknown]

NARRATIVE: CASE EVENT DATE: 2019
